FAERS Safety Report 7962496-8 (Version None)
Quarter: 2011Q4

REPORT INFORMATION
  Report Type: 
  Country: None (occurrence: None)
  Receive Date: 20111207
  Receipt Date: 20111202
  Transmission Date: 20120403
  Serious: Yes (Other)
  Sender: FDA-Public Use
  Company Number: US-GLAXOSMITHKLINE-A0936839A

PATIENT
  Age: 74 Year
  Sex: Male

DRUGS (3)
  1. AVODART [Suspect]
     Indication: BENIGN PROSTATIC HYPERPLASIA
     Dosage: 1CAP PER DAY
     Route: 048
     Dates: start: 20100409, end: 20110101
  2. NORVASC [Concomitant]
  3. SIMVASTATIN [Concomitant]

REACTIONS (18)
  - INTRAOCULAR PRESSURE INCREASED [None]
  - MYALGIA [None]
  - DIZZINESS [None]
  - HYPERKERATOSIS [None]
  - BREAST ENLARGEMENT [None]
  - BALANCE DISORDER [None]
  - RASH [None]
  - CONSTIPATION [None]
  - LIBIDO DECREASED [None]
  - MUSCLE TWITCHING [None]
  - GAIT DISTURBANCE [None]
  - DYSSTASIA [None]
  - ACTIVITIES OF DAILY LIVING IMPAIRED [None]
  - MICTURITION DISORDER [None]
  - SKIN DISORDER [None]
  - FALL [None]
  - BACK PAIN [None]
  - PRURITUS [None]
